FAERS Safety Report 19745967 (Version 2)
Quarter: 2022Q2

REPORT INFORMATION
  Report Type: Spontaneous
  Country: US (occurrence: None)
  Receive Date: 20210825
  Receipt Date: 20220412
  Transmission Date: 20220720
  Serious: Yes (Other)
  Sender: FDA-Public Use
  Company Number: 2021A687840

PATIENT
  Sex: Female
  Weight: 90.7 kg

DRUGS (46)
  1. NEXIUM [Suspect]
     Active Substance: ESOMEPRAZOLE MAGNESIUM
     Indication: Gastrooesophageal reflux disease
     Dosage: FOR VARIOUS DATES AND YEARS
     Route: 048
  2. NEXIUM [Suspect]
     Active Substance: ESOMEPRAZOLE MAGNESIUM
     Indication: Gastrooesophageal reflux disease
     Route: 048
     Dates: start: 2009, end: 2010
  3. PRILOSEC [Suspect]
     Active Substance: OMEPRAZOLE MAGNESIUM
     Indication: Gastrooesophageal reflux disease
     Route: 048
     Dates: start: 2009, end: 2018
  4. PRILOSEC [Suspect]
     Active Substance: OMEPRAZOLE MAGNESIUM
     Indication: Gastrooesophageal reflux disease
     Dosage: GENERIC
     Route: 065
     Dates: start: 2012, end: 2018
  5. PRILOSEC [Suspect]
     Active Substance: OMEPRAZOLE MAGNESIUM
     Indication: Gastrooesophageal reflux disease
     Dosage: GENERIC40.0MG UNKNOWN
     Route: 065
     Dates: start: 2021
  6. ATORVASTATIN [Concomitant]
     Active Substance: ATORVASTATIN
     Indication: Blood cholesterol
     Dates: start: 2014
  7. TRAMADOL [Concomitant]
     Active Substance: TRAMADOL
     Indication: Pain
     Dates: start: 2017, end: 2018
  8. CIPROFLOXACIN [Concomitant]
     Active Substance: CIPROFLOXACIN
     Indication: Infection
     Dates: start: 2015, end: 2018
  9. AZITHROMYCIN [Concomitant]
     Active Substance: AZITHROMYCIN
     Indication: Infection
     Dates: start: 2015, end: 2019
  10. DICLOFENAC [Concomitant]
     Active Substance: DICLOFENAC
     Indication: Antiinflammatory therapy
     Dates: start: 2014, end: 2016
  11. AMOXICILLIN\CLAVULANATE POTASSIUM [Concomitant]
     Active Substance: AMOXICILLIN\CLAVULANATE POTASSIUM
     Indication: Infection
     Dates: start: 2015
  12. PRAVASTATIN [Concomitant]
     Active Substance: PRAVASTATIN
     Indication: Blood cholesterol
     Dates: start: 2013
  13. COENZYME Q10 [Concomitant]
     Active Substance: DIETARY SUPPLEMENT\UBIDECARENONE
     Indication: Product communication issue
     Dates: start: 2014
  14. VITAMIN D [Concomitant]
     Active Substance: VITAMIN D NOS
     Indication: Product communication issue
     Dates: start: 2012
  15. LORATADINE [Concomitant]
     Active Substance: LORATADINE
     Indication: Hypersensitivity
     Dates: start: 2017
  16. POTASSIUM [Concomitant]
     Active Substance: POTASSIUM
     Indication: Product communication issue
     Dates: start: 2013, end: 2017
  17. VITAMIN B12 [Concomitant]
     Active Substance: CYANOCOBALAMIN
     Indication: Product communication issue
     Dates: start: 2014
  18. RANITIDINE [Concomitant]
     Active Substance: RANITIDINE
     Dates: start: 2017
  19. TUMS [Concomitant]
     Active Substance: CALCIUM CARBONATE
     Dates: start: 2018
  20. CLONAZEPAM [Concomitant]
     Active Substance: CLONAZEPAM
  21. SYNTHROID [Concomitant]
     Active Substance: LEVOTHYROXINE SODIUM
  22. FISH OIL [Concomitant]
     Active Substance: FISH OIL
  23. SPIRONOLACTONE [Concomitant]
     Active Substance: SPIRONOLACTONE
  24. MONTELUKAST [Concomitant]
     Active Substance: MONTELUKAST SODIUM
  25. PREDNISONE [Concomitant]
     Active Substance: PREDNISONE
  26. PAROXETINE [Concomitant]
     Active Substance: PAROXETINE
  27. LEVOTHYROXINE [Concomitant]
     Active Substance: LEVOTHYROXINE
  28. AMLODIPINE [Concomitant]
     Active Substance: AMLODIPINE BESYLATE
  29. NITROFURANTOIN [Concomitant]
     Active Substance: NITROFURANTOIN
  30. AMMONIUM LACT [Concomitant]
  31. HALOBETASOL PROPIONATE [Concomitant]
     Active Substance: HALOBETASOL PROPIONATE
  32. MOVIPREP [Concomitant]
     Active Substance: ASCORBIC ACID\POLYETHYLENE GLYCOL 3350\POTASSIUM CHLORIDE\SODIUM ASCORBATE\SODIUM CHLORIDE\SODIUM SU
  33. POTASSIUM CHLORIDE [Concomitant]
     Active Substance: POTASSIUM CHLORIDE
  34. GABAPENTIN [Concomitant]
     Active Substance: GABAPENTIN
  35. KETOCONAZOLE [Concomitant]
     Active Substance: KETOCONAZOLE
  36. MISOPROSTOL [Concomitant]
     Active Substance: MISOPROSTOL
  37. PROAIR HFA [Concomitant]
     Active Substance: ALBUTEROL SULFATE
  38. MOMETASONE [Concomitant]
     Active Substance: MOMETASONE
  39. NASONEX [Concomitant]
     Active Substance: MOMETASONE FUROATE
  40. ZOSTAVAX [Concomitant]
     Active Substance: VARICELLA-ZOSTER VIRUS STRAIN OKA/MERCK LIVE ANTIGEN
  41. KLOR-CON [Concomitant]
     Active Substance: POTASSIUM CHLORIDE
  42. ACETAMINOPHEN\OXYCODONE HYDROCHLORIDE [Concomitant]
     Active Substance: ACETAMINOPHEN\OXYCODONE HYDROCHLORIDE
  43. PHENAZOPYRIDINE [Concomitant]
     Active Substance: PHENAZOPYRIDINE
  44. FLUTICASONE [Concomitant]
     Active Substance: FLUTICASONE
  45. LEVOCETIRIZINE [Concomitant]
     Active Substance: LEVOCETIRIZINE
  46. CLARITIN [Concomitant]
     Active Substance: LORATADINE

REACTIONS (3)
  - Chronic kidney disease [Not Recovered/Not Resolved]
  - Renal failure [Unknown]
  - Rebound acid hypersecretion [Unknown]
